FAERS Safety Report 4997815-8 (Version None)
Quarter: 2006Q2

REPORT INFORMATION
  Report Type: 
  Country: None (occurrence: None)
  Receive Date: 20060510
  Receipt Date: 20060328
  Transmission Date: 20061013
  Serious: Yes (Hospitalization, Disabling)
  Sender: FDA-Public Use
  Company Number: US-BRISTOL-MYERS SQUIBB COMPANY-13329057

PATIENT
  Age: 50 Year
  Sex: Male
  Weight: 68 kg

DRUGS (9)
  1. MONOPRIL [Suspect]
     Indication: STENT PLACEMENT
     Dosage: DURATION: 7 OR 8 YEARS
  2. PLAVIX [Suspect]
     Indication: STENT PLACEMENT
     Dosage: DURATION: 7 TO 8 YEARS
  3. LOPRESSOR [Concomitant]
     Dosage: DURATION: 13 YEARS
  4. NEXIUM [Concomitant]
     Dosage: DURATION: 13 YEARS
  5. NEURONTIN [Concomitant]
     Dosage: DURATION: 13 YEARS
  6. NORVASC [Concomitant]
     Dosage: DURATION: 13 YEARS
  7. REGULAR INSULIN [Concomitant]
     Dosage: SLIDING SCALE, DURATION: 13 YEARS
  8. ASPIRIN [Concomitant]
     Dosage: DURATION: 7 TO 8 YEARS
  9. NITROGLYCERIN [Concomitant]
     Dates: start: 20050101

REACTIONS (2)
  - MYALGIA [None]
  - MYOCARDIAL INFARCTION [None]
